FAERS Safety Report 10302721 (Version 1)
Quarter: 2014Q3

REPORT INFORMATION
  Report Type: Spontaneous
  Country: US (occurrence: None)
  Receive Date: 20140708
  Receipt Date: 20140708
  Transmission Date: 20150326
  Serious: Yes (Other)
  Sender: FDA-Public Use
  Company Number: 2014SA026008

PATIENT
  Age: 68 Year
  Sex: Male

DRUGS (9)
  1. CELEBREX [Concomitant]
     Active Substance: CELECOXIB
  2. LIPITOR [Concomitant]
     Active Substance: ATORVASTATIN CALCIUM
  3. APIDRA SOLOSTAR [Concomitant]
     Active Substance: INSULIN GLULISINE
  4. SOLOSTAR [Concomitant]
     Active Substance: DEVICE
  5. LOVASTATIN. [Concomitant]
     Active Substance: LOVASTATIN
  6. HMG COA REDUCTASE INHIBITORS [Concomitant]
     Active Substance: UNSPECIFIED INGREDIENT
  7. ALEVE [Concomitant]
     Active Substance: NAPROXEN SODIUM
  8. LANTUS SOLOSTAR [Suspect]
     Active Substance: INSULIN GLARGINE
     Indication: TYPE 1 DIABETES MELLITUS
     Route: 051
     Dates: start: 2009
  9. TYLENOL [Concomitant]
     Active Substance: ACETAMINOPHEN

REACTIONS (6)
  - Prostate cancer [None]
  - Osteoarthritis [None]
  - Therapy cessation [None]
  - Pain [None]
  - Blood testosterone increased [None]
  - Expired product administered [None]
